FAERS Safety Report 5098075-2 (Version None)
Quarter: 2006Q3

REPORT INFORMATION
  Report Type: 
  Country: None (occurrence: None)
  Receive Date: 20060906
  Receipt Date: 20060602
  Transmission Date: 20061208
  Serious: Yes (Hospitalization, Other)
  Sender: FDA-Public Use
  Company Number: US-AMGEN-STX182195

PATIENT
  Sex: Male
  Weight: 75 kg

DRUGS (5)
  1. ENBREL [Suspect]
     Indication: RHEUMATOID ARTHRITIS
     Route: 058
     Dates: start: 19980101, end: 20051001
  2. HYDROCODONE BITARTRATE [Concomitant]
  3. CIPROFLOXACIN [Concomitant]
  4. PREVACID [Concomitant]
  5. ASPIRIN [Concomitant]

REACTIONS (36)
  - ALLERGIC SINUSITIS [None]
  - AMYLOIDOSIS [None]
  - BLASTOMYCOSIS [None]
  - BODY TEMPERATURE INCREASED [None]
  - BONE LESION [None]
  - BONE MARROW DISORDER [None]
  - CERVICAL SPINAL STENOSIS [None]
  - CHILLS [None]
  - CHOLELITHIASIS [None]
  - CLAVICLE FRACTURE [None]
  - COMPUTERISED TOMOGRAM ABNORMAL [None]
  - CONSTIPATION [None]
  - DRY SKIN [None]
  - DYSPEPSIA [None]
  - FATIGUE [None]
  - HEPATIC LESION [None]
  - INTERVERTEBRAL DISC PROTRUSION [None]
  - LUNG NEOPLASM [None]
  - MENINGEAL NEOPLASM [None]
  - METASTATIC NEOPLASM [None]
  - MULTIPLE MYELOMA [None]
  - MYCOBACTERIAL INFECTION [None]
  - NIGHT SWEATS [None]
  - NOCTURIA [None]
  - OSTEOPENIA [None]
  - OSTEOPOROSIS [None]
  - PLEURAL FIBROSIS [None]
  - PROSTATE CANCER [None]
  - PRURITUS [None]
  - PYELONEPHRITIS CHRONIC [None]
  - SPINAL CORD COMPRESSION [None]
  - THROMBOCYTOPENIA [None]
  - TINNITUS [None]
  - URINARY INCONTINENCE [None]
  - URINE FLOW DECREASED [None]
  - WEIGHT DECREASED [None]
